FAERS Safety Report 7016267-X (Version None)
Quarter: 2010Q3

REPORT INFORMATION
  Report Type: 
  Country: None (occurrence: None)
  Receive Date: 20100927
  Receipt Date: 20100917
  Transmission Date: 20110219
  Serious: Yes (Other)
  Sender: FDA-Public Use
  Company Number: BR-ABBOTT-10P-020-0671511-00

PATIENT
  Sex: Female
  Weight: 90 kg

DRUGS (2)
  1. DEPAKOTE ER [Suspect]
     Indication: EPILEPSY
     Route: 048
  2. DEPAKOTE ER [Suspect]

REACTIONS (2)
  - EPILEPSY [None]
  - MALAISE [None]
